FAERS Safety Report 22002527 (Version 1)
Quarter: 2023Q1

REPORT INFORMATION
  Report Type: Spontaneous
  Country: DE (occurrence: DE)
  Receive Date: 20230217
  Receipt Date: 20230217
  Transmission Date: 20230417
  Serious: Yes (Other)
  Sender: FDA-Public Use
  Company Number: DE-009507513-2302DEU005165

PATIENT
  Sex: Male

DRUGS (2)
  1. TEMODAL [Suspect]
     Active Substance: TEMOZOLOMIDE
     Indication: Glioblastoma
     Route: 048
     Dates: start: 2010
  2. TEMODAL [Suspect]
     Active Substance: TEMOZOLOMIDE
     Dosage: UNK
     Route: 048

REACTIONS (2)
  - Glioblastoma [Not Recovered/Not Resolved]
  - Drug ineffective [Unknown]

NARRATIVE: CASE EVENT DATE: 20150101
